FAERS Safety Report 5787026-0 (Version None)
Quarter: 2008Q2

REPORT INFORMATION
  Report Type: 
  Country: None (occurrence: None)
  Receive Date: 20080618
  Receipt Date: 20070913
  Transmission Date: 20081010
  Serious: Yes (Other)
  Sender: FDA-Public Use
  Company Number: 200620304US

PATIENT
  Age: 69 Year
  Sex: Female

DRUGS (15)
  1. LANTUS [Suspect]
     Indication: TYPE 2 DIABETES MELLITUS
     Dosage: 20 U QPM
     Dates: start: 20061001, end: 20061201
  2. LANTUS [Suspect]
     Indication: TYPE 2 DIABETES MELLITUS
     Dosage: QAM
     Dates: start: 20061201
  3. OPTICLICK [Suspect]
     Indication: TYPE 2 DIABETES MELLITUS
     Dates: start: 20061001
  4. LISINOPRIL [Concomitant]
  5. GLIMEPIRIDE [Concomitant]
  6. LORAZEPAM [Concomitant]
  7. CLOPIDOGREL [Concomitant]
  8. LIPITOR [Concomitant]
  9. TOLTERODINE TARTRATE [Concomitant]
  10. ASPIRIN [Concomitant]
  11. HYDROCHLOROTHIAZIDE [Concomitant]
  12. BUSPIRONE HCL [Concomitant]
  13. ^OPEOMEPRAGONE^ NOS [Concomitant]
  14. PIOGLITAZONE [Concomitant]
  15. MIRTAZAPINE [Concomitant]

REACTIONS (3)
  - CONDITION AGGRAVATED [None]
  - HYPOGLYCAEMIA [None]
  - OEDEMA PERIPHERAL [None]
